FAERS Safety Report 6715978-0 (Version None)
Quarter: 2010Q2

REPORT INFORMATION
  Report Type: 
  Country: None (occurrence: None)
  Receive Date: 20100507
  Receipt Date: 20100423
  Transmission Date: 20101027
  Serious: Yes (Other)
  Sender: FDA-Public Use
  Company Number: US-BAYER-201020626NA

PATIENT
  Sex: Female

DRUGS (2)
  1. YASMIN [Suspect]
     Indication: DRUG USE FOR UNKNOWN INDICATION
     Route: 048
     Dates: start: 20080301, end: 20080601
  2. ORTHO TRI-CYCLEN [Suspect]
     Route: 048
     Dates: start: 20080301, end: 20080601

REACTIONS (1)
  - FOCAL NODULAR HYPERPLASIA [None]
